FAERS Safety Report 14500075 (Version 1)
Quarter: 2018Q1

REPORT INFORMATION
  Report Type: Not Available
  Country: US (occurrence: US)
  Receive Date: 20180207
  Receipt Date: 20180207
  Transmission Date: 20180509
  Serious: No
  Sender: FDA-Public Use
  Company Number: US-FOUNDATIONCONSUMERHC-2017-US-014110

PATIENT
  Age: 15 Year
  Sex: Female
  Weight: 58.97 kg

DRUGS (2)
  1. PLAN B ONE-STEP [Suspect]
     Active Substance: LEVONORGESTREL
     Dosage: 1 TAB 1 HOUR AFTER SEX
     Route: 048
     Dates: start: 20171126, end: 20171126
  2. LEXAPRO [Concomitant]
     Active Substance: ESCITALOPRAM OXALATE

REACTIONS (1)
  - Vaginal discharge [Unknown]

NARRATIVE: CASE EVENT DATE: 20171127
